FAERS Safety Report 6520600-2 (Version None)
Quarter: 2009Q4

REPORT INFORMATION
  Report Type: 
  Country: None (occurrence: None)
  Receive Date: 20091229
  Receipt Date: 20091218
  Transmission Date: 20100525
  Serious: Yes (Other)
  Sender: FDA-Public Use
  Company Number: GB-BAXTER-2009BH019724

PATIENT
  Age: 64 Year
  Sex: Male

DRUGS (11)
  1. CYCLOPHOSPHAMIDE [Suspect]
     Indication: BRONCHIAL CARCINOMA
     Route: 065
  2. MESNA [Suspect]
     Indication: BRONCHIAL CARCINOMA
     Route: 065
  3. DIMETHYL SULFOXIDE [Suspect]
     Indication: BRONCHIAL CARCINOMA
     Dosage: DOSE UNIT:UNKNOWN
  4. DOXORUBICIN HCL [Concomitant]
     Indication: BRONCHIAL CARCINOMA
     Route: 065
  5. VINCRISTINE SULFATE [Concomitant]
     Indication: BRONCHIAL CARCINOMA
     Route: 065
  6. ETOPOSIDE [Concomitant]
     Indication: BRONCHIAL CARCINOMA
     Route: 065
  7. METOCLOPRAMIDE [Concomitant]
     Indication: DRUG USE FOR UNKNOWN INDICATION
     Route: 065
  8. LORAZEPAM [Concomitant]
     Indication: DRUG USE FOR UNKNOWN INDICATION
     Route: 065
  9. NYSTATIN [Concomitant]
     Indication: DRUG USE FOR UNKNOWN INDICATION
     Route: 065
  10. CHLORPHENIRAMINE [Concomitant]
     Indication: DRUG USE FOR UNKNOWN INDICATION
     Route: 065
  11. ACETAMINOPHEN WITH PROPOXYPHENE HCL TAB [Concomitant]
     Indication: DRUG USE FOR UNKNOWN INDICATION
     Route: 065

REACTIONS (2)
  - MALIGNANT NEOPLASM PROGRESSION [None]
  - NEPHROGENIC DIABETES INSIPIDUS [None]
